FAERS Safety Report 16663345 (Version 2)
Quarter: 2019Q3

REPORT INFORMATION
  Report Type: Report from Study
  Country: JP (occurrence: JP)
  Receive Date: 20190802
  Receipt Date: 20190819
  Transmission Date: 20191004
  Serious: Yes (Death)
  Sender: FDA-Public Use
  Company Number: JP-PFIZER INC-2019325661

PATIENT
  Sex: Male
  Weight: 3.8 kg

DRUGS (3)
  1. REVATHIO [Suspect]
     Active Substance: SILDENAFIL CITRATE
     Indication: PULMONARY HYPERTENSION
     Dosage: 2.533 MG, 3X/DAY
     Dates: start: 20170927, end: 20171008
  2. REVATHIO [Suspect]
     Active Substance: SILDENAFIL CITRATE
     Dosage: 2.666 MG, 3X/DAY
     Dates: start: 20171009
  3. BOSENTAN HYDRATE [Concomitant]
     Indication: PULMONARY HYPERTENSION
     Dosage: UNK
     Route: 048

REACTIONS (1)
  - Cardiopulmonary failure [Fatal]

NARRATIVE: CASE EVENT DATE: 20180209
